FAERS Safety Report 13964164 (Version 2)
Quarter: 2017Q3

REPORT INFORMATION
  Report Type: Spontaneous
  Country: US (occurrence: US)
  Receive Date: 20170913
  Receipt Date: 20170915
  Transmission Date: 20171128
  Serious: Yes (Hospitalization, Other)
  Sender: FDA-Public Use
  Company Number: US-PFIZER INC-2017392792

PATIENT
  Age: 60 Year
  Sex: Male
  Weight: 103.87 kg

DRUGS (8)
  1. ASPIRIN. [Concomitant]
     Active Substance: ASPIRIN
     Indication: THROMBOSIS
  2. LYRICA [Suspect]
     Active Substance: PREGABALIN
     Indication: NEUROPATHY PERIPHERAL
     Dosage: 100MG CAPSULE THREE TIMES A DAY
     Dates: start: 201707
  3. AMBIEN [Concomitant]
     Active Substance: ZOLPIDEM TARTRATE
     Indication: SLEEP DISORDER
     Dosage: 50 MG, 1X/DAY
  4. ASPIRIN. [Concomitant]
     Active Substance: ASPIRIN
     Indication: ARTERIAL DISORDER
     Dosage: UNK, 1X/DAY DOSE UNKNOWN, TAKES ONCE A DAY
  5. LYRICA [Suspect]
     Active Substance: PREGABALIN
     Indication: DIABETIC NEUROPATHY
  6. NOVOLOG [Concomitant]
     Active Substance: INSULIN ASPART
     Indication: DIABETES MELLITUS
     Dosage: UNK, 3X/DAY UNKNOWN DOSE; INJECTION THREE TIMES A DAY
  7. LANTUS [Concomitant]
     Active Substance: INSULIN GLARGINE
     Indication: DIABETES MELLITUS
     Dosage: UNK, 1X/DAY UNKNOWN DOSE: ONCE A DAY BEFORE BEDTIME
  8. PAXIL [Concomitant]
     Active Substance: PAROXETINE HYDROCHLORIDE
     Indication: DEPRESSION
     Dosage: UNK

REACTIONS (3)
  - Arrhythmia [Unknown]
  - Drug effect incomplete [Not Recovered/Not Resolved]
  - Nervousness [Unknown]

NARRATIVE: CASE EVENT DATE: 201707
